FAERS Safety Report 9054704 (Version 1)
Quarter: 2013Q1

REPORT INFORMATION
  Report Type: Spontaneous
  Country: US (occurrence: US)
  Receive Date: 20130208
  Receipt Date: 20130208
  Transmission Date: 20140127
  Serious: Yes (Hospitalization, Other)
  Sender: FDA-Public Use
  Company Number: US-JNJFOC-20130117174

PATIENT
  Age: 14 Year
  Sex: Female

DRUGS (6)
  1. DOXORUBICIN [Suspect]
     Indication: BONE SARCOMA
     Route: 042
     Dates: end: 198906
  2. METHOTREXATE [Suspect]
     Indication: BONE SARCOMA
     Dosage: HIGH DOSE
     Route: 065
     Dates: end: 198906
  3. ACTINOMYCIN D [Suspect]
     Indication: BONE SARCOMA
     Route: 065
     Dates: end: 198906
  4. VINCRISTINE [Suspect]
     Indication: BONE SARCOMA
     Route: 065
     Dates: end: 198906
  5. CYCLOPHOSPHAMIDE [Suspect]
     Indication: BONE SARCOMA
     Route: 065
     Dates: end: 198906
  6. BLEOMYCIN [Suspect]
     Indication: BONE SARCOMA
     Route: 065
     Dates: end: 198906

REACTIONS (4)
  - Adverse drug reaction [Unknown]
  - Non-Hodgkin^s lymphoma [Recovered/Resolved]
  - Febrile neutropenia [Unknown]
  - Off label use [Recovered/Resolved]
